FAERS Safety Report 8050004-5 (Version None)
Quarter: 2012Q1

REPORT INFORMATION
  Report Type: 
  Country: None (occurrence: None)
  Receive Date: 20120117
  Receipt Date: 20120111
  Transmission Date: 20120608
  Serious: Yes (Other)
  Sender: FDA-Public Use
  Company Number: JP-PFIZER INC-2011276089

PATIENT
  Age: 70 Year
  Sex: Male
  Weight: 44.4 kg

DRUGS (8)
  1. ITRACONAZOLE [Concomitant]
     Indication: BRONCHOPULMONARY ASPERGILLOSIS
     Dosage: 100 MG, 1X/DAY
     Route: 048
     Dates: end: 20111107
  2. POLAPREZINC [Concomitant]
     Dosage: 75 MG, 1X/DAY
     Route: 048
  3. ASPIRIN [Concomitant]
     Dosage: 100 MG, 1X/DAY
     Route: 048
  4. DEXTROMETHORPHAN HYDROBROMIDE [Concomitant]
     Indication: BRONCHOPULMONARY ASPERGILLOSIS
     Dosage: 30 MG, 3X/DAY
     Route: 048
  5. MAGNESIUM SULFATE [Concomitant]
     Dosage: 330 MG, 3X/DAY
     Route: 048
  6. VFEND [Suspect]
     Indication: BRONCHOPULMONARY ASPERGILLOSIS
     Dosage: 600 MG, DAILY
     Route: 048
     Dates: start: 20111108, end: 20111108
  7. VFEND [Suspect]
     Dosage: 300 MG, DAILY
     Route: 048
     Dates: start: 20111109, end: 20111109
  8. SIGMART [Concomitant]
     Dosage: 5 MG, 3X/DAY
     Route: 048

REACTIONS (3)
  - CHROMATOPSIA [None]
  - HALLUCINATION [None]
  - HALLUCINATION, AUDITORY [None]
